FAERS Safety Report 4977703-3 (Version None)
Quarter: 2006Q2

REPORT INFORMATION
  Report Type: 
  Country: None (occurrence: None)
  Receive Date: 20060420
  Receipt Date: 20060213
  Transmission Date: 20061013
  Serious: No
  Sender: FDA-Public Use
  Company Number: US-GLAXOSMITHKLINE-A0593459A

PATIENT
  Age: 41 Year
  Sex: Male

DRUGS (2)
  1. ESKALITH [Suspect]
     Dosage: 1200MG TWICE PER DAY
     Route: 048
     Dates: start: 19850101, end: 20010101
  2. HALDOL [Concomitant]

REACTIONS (4)
  - DIARRHOEA [None]
  - POLYDIPSIA [None]
  - POLYURIA [None]
  - THERAPEUTIC RESPONSE UNEXPECTED [None]
